FAERS Safety Report 22123970 (Version 3)
Quarter: 2023Q2

REPORT INFORMATION
  Report Type: Spontaneous
  Country: JP (occurrence: JP)
  Receive Date: 20230322
  Receipt Date: 20230607
  Transmission Date: 20230722
  Serious: Yes (Hospitalization)
  Sender: FDA-Public Use
  Company Number: JP-ABBVIE-4700016

PATIENT
  Age: 73 Year
  Sex: Male
  Weight: 54 kg

DRUGS (2)
  1. HUMIRA [Suspect]
     Active Substance: ADALIMUMAB
     Indication: Psoriatic arthropathy
     Dosage: FORM STRENGTH: 80 MILLIGRAM
     Route: 058
     Dates: start: 2022, end: 20230222
  2. HUMIRA [Suspect]
     Active Substance: ADALIMUMAB
     Dosage: FORM STRENGTH: 80 MILLIGRAM
     Route: 058
     Dates: start: 20190311, end: 2021

REACTIONS (1)
  - Lacunar infarction [Unknown]

NARRATIVE: CASE EVENT DATE: 20230306
